FAERS Safety Report 21333712 (Version 2)
Quarter: 2022Q3

REPORT INFORMATION
  Report Type: Spontaneous
  Country: US (occurrence: US)
  Receive Date: 20220914
  Receipt Date: 20220927
  Transmission Date: 20221027
  Serious: Yes (Hospitalization)
  Sender: FDA-Public Use
  Company Number: US-BOIRON-202200486

PATIENT
  Age: 6 Year
  Sex: Female
  Weight: 22.676 kg

DRUGS (3)
  1. BELLADONNA 30C [Suspect]
     Active Substance: ATROPA BELLADONNA
     Indication: Pyrexia
     Dosage: 3 DOSAGE FORM ^TABLETS^, ONCE
     Route: 048
     Dates: start: 20220831, end: 20220831
  2. PULSATILLA [Concomitant]
     Active Substance: PULSATILLA VULGARIS
     Dosage: 1 DOSAGE FORM ^TABLET^
     Dates: start: 20220831
  3. MOTRIN [Concomitant]
     Active Substance: IBUPROFEN

REACTIONS (1)
  - Febrile convulsion [Recovered/Resolved]

NARRATIVE: CASE EVENT DATE: 20220831
